FAERS Safety Report 23053548 (Version 1)
Quarter: 2023Q4

REPORT INFORMATION
  Report Type: Spontaneous
  Country: US (occurrence: US)
  Receive Date: 20231011
  Receipt Date: 20231011
  Transmission Date: 20240110
  Serious: Yes (Death, Hospitalization, Other)
  Sender: FDA-Public Use
  Company Number: US-SA-2023SA305102

PATIENT
  Age: 37 Year
  Sex: Male

DRUGS (3)
  1. ANTI-THYMOCYTE GLOBULIN (RABBIT) NOS [Suspect]
     Active Substance: LAPINE T-LYMPHOCYTE IMMUNE GLOBULIN
     Indication: Complications of transplanted lung
     Dosage: UNK
     Dates: start: 2021
  2. RIOCIGUAT [Concomitant]
     Active Substance: RIOCIGUAT
     Indication: Pulmonary arterial hypertension
     Dosage: UNK
  3. TREPROSTINIL [Concomitant]
     Active Substance: TREPROSTINIL
     Indication: Pulmonary arterial hypertension
     Dosage: UNK

REACTIONS (8)
  - Cardiac arrest [Fatal]
  - Pulmonary oedema [Fatal]
  - Pulmonary vascular disorder [Fatal]
  - Pneumonitis aspiration [Fatal]
  - Mycobacterium abscessus infection [Fatal]
  - Dyspnoea exertional [Fatal]
  - Lung opacity [Fatal]
  - Hypoxia [Fatal]
